FAERS Safety Report 8953219 (Version 1)
Quarter: 2012Q4

REPORT INFORMATION
  Report Type: 
  Country: US (occurrence: US)
  Receive Date: 20121206
  Receipt Date: 20121206
  Transmission Date: 20130627
  Serious: Yes (Hospitalization)
  Sender: FDA-Public Use
  Company Number: US-AMGEN-USASP2012072114

PATIENT
  Age: 52 Year
  Sex: Female

DRUGS (4)
  1. ENBREL [Suspect]
     Indication: PSORIASIS
     Dosage: 50 mg, biweekly
     Route: 058
     Dates: start: 20111028, end: 201204
  2. AMLODIPINE [Concomitant]
     Indication: HYPERTENSION
     Dosage: UNK
     Route: 048
  3. ASA [Concomitant]
     Dosage: UNK
     Route: 048
  4. FISH OIL [Concomitant]
     Dosage: UNK
     Route: 048

REACTIONS (2)
  - Colorectal cancer [Not Recovered/Not Resolved]
  - Appendicitis [Recovered/Resolved]
